FAERS Safety Report 21517018 (Version 2)
Quarter: 2022Q4

REPORT INFORMATION
  Report Type: Spontaneous
  Country: DE (occurrence: DE)
  Receive Date: 20221028
  Receipt Date: 20221204
  Transmission Date: 20230113
  Serious: Yes (Other)
  Sender: FDA-Public Use
  Company Number: DE-PFIZER INC-202201250852

PATIENT
  Age: 37 Year
  Sex: Male

DRUGS (1)
  1. ENBREL [Suspect]
     Active Substance: ETANERCEPT
     Indication: Product used for unknown indication
     Dosage: UNK
     Route: 065

REACTIONS (11)
  - Lung disorder [Unknown]
  - Pneumonia [Unknown]
  - Infection [Unknown]
  - Temperature intolerance [Unknown]
  - Hyperhidrosis [Unknown]
  - Sleep disorder [Unknown]
  - Depressed mood [Unknown]
  - Alopecia [Unknown]
  - Pallor [Unknown]
  - Malaise [Unknown]
  - Tonsillitis [Unknown]
